FAERS Safety Report 24444939 (Version 2)
Quarter: 2024Q4

REPORT INFORMATION
  Report Type: Report from Study
  Country: US (occurrence: US)
  Receive Date: 20241016
  Receipt Date: 20241017
  Transmission Date: 20250115
  Serious: No
  Sender: ROCHE
  Company Number: US-ROCHE-2849293

PATIENT
  Age: 60 Year
  Sex: Female

DRUGS (15)
  1. RITUXAN [Suspect]
     Active Substance: RITUXIMAB
     Indication: Myasthenic syndrome
     Route: 041
     Dates: start: 201812
  2. FIRDAPSE [Concomitant]
     Active Substance: AMIFAMPRIDINE PHOSPHATE
  3. GABAPENTIN [Concomitant]
     Active Substance: GABAPENTIN
  4. SERTRALINE HYDROCHLORIDE [Concomitant]
     Active Substance: SERTRALINE HYDROCHLORIDE
  5. SIMVASTATIN [Concomitant]
     Active Substance: SIMVASTATIN
  6. PREVACID [Concomitant]
     Active Substance: LANSOPRAZOLE
  7. MESTINON [Concomitant]
     Active Substance: PYRIDOSTIGMINE BROMIDE
  8. ACETAMINOPHEN [Concomitant]
     Active Substance: ACETAMINOPHEN
     Route: 048
  9. BENADRYL [Concomitant]
     Active Substance: DIPHENHYDRAMINE HYDROCHLORIDE
     Route: 048
  10. METHYLPREDNISOLONE [Concomitant]
     Active Substance: METHYLPREDNISOLONE
  11. EPINEPHRINE [Concomitant]
     Active Substance: EPINEPHRINE
     Dosage: PRN
     Route: 030
  12. MEPERIDINE [Concomitant]
     Active Substance: MEPERIDINE
     Route: 042
  13. SODIUM CHLORIDE [Concomitant]
     Active Substance: SODIUM CHLORIDE
     Dosage: 10-16 ML
     Route: 042
  14. FAMOTIDINE [Concomitant]
     Active Substance: FAMOTIDINE
     Dosage: PRN
     Route: 042
  15. ALBUTEROL [Concomitant]
     Active Substance: ALBUTEROL
     Dosage: 2 PUFF INHALE PRN

REACTIONS (5)
  - Off label use [Unknown]
  - Hypotension [Recovered/Resolved]
  - Fatigue [Recovered/Resolved]
  - Dizziness [Recovered/Resolved]
  - Urticaria [Recovered/Resolved]

NARRATIVE: CASE EVENT DATE: 20181201
